FAERS Safety Report 6197103-0 (Version None)
Quarter: 2009Q2

REPORT INFORMATION
  Report Type: 
  Country: None (occurrence: None)
  Receive Date: 20090518
  Receipt Date: 20090518
  Transmission Date: 20091009
  Serious: Yes (Other)
  Sender: FDA-Public Use
  Company Number: None

PATIENT
  Sex: Male
  Weight: 74.8435 kg

DRUGS (1)
  1. CHANTIX [Suspect]
     Indication: SMOKING CESSATION THERAPY
     Dosage: 1MG
     Dates: start: 20070910, end: 20071210

REACTIONS (7)
  - ABNORMAL DREAMS [None]
  - DEPRESSION [None]
  - GASTROINTESTINAL DISORDER [None]
  - MALAISE [None]
  - MOOD ALTERED [None]
  - NAUSEA [None]
  - VOMITING [None]
